FAERS Safety Report 6894844-4 (Version None)
Quarter: 2010Q3

REPORT INFORMATION
  Report Type: 
  Country: None (occurrence: None)
  Receive Date: 20100730
  Receipt Date: 20100730
  Transmission Date: 20110219
  Serious: Yes (Other)
  Sender: FDA-Public Use
  Company Number: None

PATIENT
  Sex: Male
  Weight: 78.4723 kg

DRUGS (1)
  1. COREG [Suspect]
     Indication: HYPERTENSION
     Dosage: 1 X DAY
     Dates: start: 20100101

REACTIONS (1)
  - NIGHTMARE [None]
